FAERS Safety Report 17909999 (Version 2)
Quarter: 2020Q3

REPORT INFORMATION
  Report Type: Spontaneous
  Country: US (occurrence: US)
  Receive Date: 20200617
  Receipt Date: 20200701
  Transmission Date: 20201103
  Serious: Yes (Hospitalization)
  Sender: FDA-Public Use
  Company Number: US-TEVA-2020-US-1510193

PATIENT
  Age: 68 Year
  Sex: Male

DRUGS (2)
  1. CYCLOSPORINE. [Suspect]
     Active Substance: CYCLOSPORINE
     Indication: IMMUNOSUPPRESSANT DRUG THERAPY
     Route: 065
  2. TORASEMIDE [Suspect]
     Active Substance: TORSEMIDE
     Dosage: MAXIMUM DOSE
     Route: 065

REACTIONS (5)
  - Renal tubular necrosis [Recovering/Resolving]
  - Acute kidney injury [Recovering/Resolving]
  - Drug ineffective [Unknown]
  - Shoshin beriberi [Unknown]
  - Cardiac failure [Recovered/Resolved]
